FAERS Safety Report 25760248 (Version 1)
Quarter: 2025Q3

REPORT INFORMATION
  Report Type: Spontaneous
  Country: US (occurrence: None)
  Receive Date: 20250903
  Receipt Date: 20250903
  Transmission Date: 20251020
  Serious: Yes (Life-Threatening, Hospitalization)
  Sender: FDA-CTU
  Company Number: None

PATIENT
  Age: 75 Year
  Sex: Male
  Weight: 105.23 kg

DRUGS (2)
  1. DOTAREM [Suspect]
     Active Substance: GADOTERATE MEGLUMINE
     Indication: Prostatic specific antigen increased
     Route: 040
     Dates: start: 20250902, end: 20250902
  2. DOTAREM [Suspect]
     Active Substance: GADOTERATE MEGLUMINE
     Indication: Benign prostatic hyperplasia

REACTIONS (2)
  - Chest pain [None]
  - Unresponsive to stimuli [None]

NARRATIVE: CASE EVENT DATE: 20250902
